FAERS Safety Report 6730840-5 (Version None)
Quarter: 2010Q2

REPORT INFORMATION
  Report Type: 
  Country: None (occurrence: None)
  Receive Date: 20100514
  Receipt Date: 20090420
  Transmission Date: 20101027
  Serious: Yes (Hospitalization)
  Sender: FDA-Public Use
  Company Number: LEO-2010-00353

PATIENT
  Sex: Male

DRUGS (7)
  1. INNOHEP [Suspect]
     Indication: DRUG EXPOSURE DURING PREGNANCY
     Dosage: TRANSPLACENTAL
     Route: 064
     Dates: start: 20070205, end: 20070623
  2. VENTOLIN [Concomitant]
  3. SERETIDE (FLUTICASONE PROPIONATE, SALMETEROL XINAFOATE) [Concomitant]
  4. DILAUDID (ATROPINE SULFATE, HYDROMORPHONE HYDROCHLORIDE) [Concomitant]
  5. VOLTAREN [Concomitant]
  6. MINPROSTIN (DINOPROSTONE) [Concomitant]
  7. SYNTOCINON [Concomitant]

REACTIONS (3)
  - MATERNAL DRUGS AFFECTING FOETUS [None]
  - PREMATURE BABY [None]
  - PREMATURE LABOUR [None]
